FAERS Safety Report 11692636 (Version 2)
Quarter: 2015Q4

REPORT INFORMATION
  Report Type: Spontaneous
  Country: JP (occurrence: JP)
  Receive Date: 20151103
  Receipt Date: 20151116
  Transmission Date: 20160304
  Serious: Yes (Other)
  Sender: FDA-Public Use
  Company Number: PHJP2015JP019194

PATIENT
  Age: 74 Year
  Sex: Male

DRUGS (2)
  1. ZOLEDRONATE [Suspect]
     Active Substance: ZOLEDRONIC ACID
     Indication: PROSTATE CANCER
     Dosage: QMO
     Route: 041
     Dates: end: 201311
  2. ZOLEDRONATE [Suspect]
     Active Substance: ZOLEDRONIC ACID
     Dosage: UNK
     Route: 041
     Dates: start: 201409

REACTIONS (8)
  - Osteonecrosis of jaw [Recovered/Resolved]
  - Impaired healing [Unknown]
  - Exposed bone in jaw [Unknown]
  - Osteomyelitis [Recovered/Resolved]
  - Gingival pain [Unknown]
  - Purulent discharge [Unknown]
  - Primary sequestrum [Unknown]
  - Gingival swelling [Unknown]
